FAERS Safety Report 20759968 (Version 2)
Quarter: 2022Q2

REPORT INFORMATION
  Report Type: Spontaneous
  Country: US (occurrence: US)
  Receive Date: 20220427
  Receipt Date: 20220620
  Transmission Date: 20220720
  Serious: No
  Sender: FDA-Public Use
  Company Number: US-BRISTOL-MYERS SQUIBB COMPANY-2022-027049

PATIENT
  Age: 84 Year
  Sex: Female

DRUGS (10)
  1. REVLIMID [Suspect]
     Active Substance: LENALIDOMIDE
     Indication: Refractory anaemia with ringed sideroblasts
     Route: 048
     Dates: start: 20220301, end: 20220304
  2. BENEFIBER POW [Concomitant]
     Indication: Product used for unknown indication
  3. CREON CAP [Concomitant]
     Indication: Product used for unknown indication
     Dosage: 6000 UNIT
  4. MIDODRINE TAB 10MG [Concomitant]
     Indication: Product used for unknown indication
  5. MIRALAX POW [Concomitant]
     Indication: Product used for unknown indication
     Dosage: 3350 NF
  6. OMEPRAZOLE TAB 20MG [Concomitant]
     Indication: Product used for unknown indication
  7. PREDNISONE [Concomitant]
     Active Substance: PREDNISONE
     Indication: Product used for unknown indication
  8. ROSUVASTATIN [Concomitant]
     Active Substance: ROSUVASTATIN
     Indication: Product used for unknown indication
  9. TRAMADOL HCL TAB 50MG [Concomitant]
     Indication: Product used for unknown indication
  10. TYLENOL TAB 500MG [Concomitant]
     Indication: Product used for unknown indication

REACTIONS (4)
  - Rash [Recovered/Resolved]
  - Diarrhoea [Unknown]
  - Pruritus [Unknown]
  - Intentional product use issue [Unknown]

NARRATIVE: CASE EVENT DATE: 20220417
